FAERS Safety Report 4540992-3 (Version None)
Quarter: 2004Q4

REPORT INFORMATION
  Report Type: 
  Country: None (occurrence: None)
  Receive Date: 20041228
  Receipt Date: 20041216
  Transmission Date: 20050328
  Serious: No
  Sender: FDA-Public Use
  Company Number: 2004AP06376

PATIENT
  Age: 68 Year
  Sex: Male

DRUGS (2)
  1. IRESSA [Suspect]
     Indication: LARGE CELL CARCINOMA OF THE RESPIRATORY TRACT STAGE UNSPECIFIED
     Dosage: 250 MG DAILY PO
     Route: 048
     Dates: start: 20040510
  2. PRIMPERAN INJ [Concomitant]

REACTIONS (1)
  - HYPOGLYCAEMIA [None]
